FAERS Safety Report 4695028-0 (Version None)
Quarter: 2005Q2

REPORT INFORMATION
  Report Type: 
  Country: None (occurrence: None)
  Receive Date: 20050617
  Receipt Date: 20050601
  Transmission Date: 20051028
  Serious: Yes (Hospitalization)
  Sender: FDA-Public Use
  Company Number: ACO_0167_2005

PATIENT
  Age: 59 Year
  Sex: Female

DRUGS (4)
  1. SIRDALUD [Suspect]
     Indication: BACK PAIN
     Dosage: VAR QDAY PO
     Route: 048
  2. VIOXX [Suspect]
     Indication: BACK PAIN
     Dosage: 25 MG QDAY PO
     Route: 048
  3. VOLTAREN [Concomitant]
  4. PHYTOTHERAPEUTICS [Concomitant]

REACTIONS (14)
  - ACUTE RIGHT VENTRICULAR FAILURE [None]
  - ALANINE AMINOTRANSFERASE INCREASED [None]
  - ANGIOPATHY [None]
  - ASPARTATE AMINOTRANSFERASE INCREASED [None]
  - BLOOD PRESSURE SYSTOLIC INCREASED [None]
  - BRADYCARDIA [None]
  - DRUG INTERACTION [None]
  - GAMMA-GLUTAMYLTRANSFERASE INCREASED [None]
  - HAEMANGIOMA OF LIVER [None]
  - HEPATIC CYST [None]
  - LIVER FUNCTION TEST ABNORMAL [None]
  - PULMONARY HYPERTENSION [None]
  - TACHYCARDIA [None]
  - VENTRICULAR EXTRASYSTOLES [None]
